FAERS Safety Report 5274537-X (Version None)
Quarter: 2007Q1

REPORT INFORMATION
  Report Type: 
  Country: None (occurrence: None)
  Receive Date: 20070323
  Receipt Date: 20070313
  Transmission Date: 20070707
  Serious: Yes (Other)
  Sender: FDA-Public Use
  Company Number: US-PFIZER INC-2007019803

PATIENT
  Sex: Female
  Weight: 77.1 kg

DRUGS (8)
  1. CHANTIX [Suspect]
     Indication: EX-SMOKER
  2. OXYCODONE HCL [Concomitant]
  3. PREVACID [Concomitant]
  4. AMBIEN [Concomitant]
  5. NORCO [Concomitant]
  6. PROZAC [Concomitant]
  7. LISINOPRIL [Concomitant]
  8. XANAX [Concomitant]

REACTIONS (8)
  - ABNORMAL DREAMS [None]
  - ANOREXIA [None]
  - ANXIETY [None]
  - DEHYDRATION [None]
  - FEELING ABNORMAL [None]
  - MALAISE [None]
  - PHOTOPSIA [None]
  - WEIGHT DECREASED [None]
